FAERS Safety Report 10028465 (Version 1)
Quarter: 2014Q1

REPORT INFORMATION
  Report Type: Spontaneous
  Country: US (occurrence: None)
  Receive Date: 20140304
  Receipt Date: 20140304
  Transmission Date: 20141002
  Serious: Yes (Other)
  Sender: FDA-Public Use
  Company Number: RB-44119-2012

PATIENT
  Age: 37 Year
  Sex: Male

DRUGS (3)
  1. SUBOXONE [Suspect]
     Indication: DRUG DEPENDENCE
     Route: 060
     Dates: start: 201209, end: 201209
  2. SUBOXONE [Suspect]
     Indication: DRUG DEPENDENCE
     Route: 060
     Dates: start: 2008, end: 2010
  3. OXYCODONE [Suspect]
     Indication: PRODUCT USED FOR UNKNOWN INDICATION
     Dosage: DOSAGE DETAIL UNKNOWN
     Dates: start: 2010, end: 2010

REACTIONS (5)
  - Drug abuse [None]
  - Dyspnoea [None]
  - Swollen tongue [None]
  - Oedema mouth [None]
  - Substance abuse [None]
